FAERS Safety Report 12786651 (Version 1)
Quarter: 2016Q3

REPORT INFORMATION
  Report Type: Spontaneous
  Country: US (occurrence: US)
  Receive Date: 20160927
  Receipt Date: 20160927
  Transmission Date: 20161109
  Serious: No
  Sender: FDA-Public Use
  Company Number: US-ASTRAZENECA-2016SF01961

PATIENT
  Sex: Female
  Weight: 81.6 kg

DRUGS (12)
  1. METFORMIN [Concomitant]
     Active Substance: METFORMIN HYDROCHLORIDE
     Indication: DIABETES MELLITUS
     Route: 048
     Dates: start: 201603
  2. LOSARTAN POTASSIUM HCTZ [Concomitant]
     Indication: ILL-DEFINED DISORDER
     Route: 048
  3. SIMVASTATIN. [Concomitant]
     Active Substance: SIMVASTATIN
     Indication: BLOOD CHOLESTEROL ABNORMAL
     Route: 048
  4. NEXIUM [Suspect]
     Active Substance: ESOMEPRAZOLE MAGNESIUM
     Indication: DYSPEPSIA
     Dosage: DAILY
     Route: 048
  5. BYDUREON [Suspect]
     Active Substance: EXENATIDE
     Indication: TYPE 2 DIABETES MELLITUS
     Route: 058
  6. NOVOLOG [Concomitant]
     Active Substance: INSULIN ASPART
     Indication: TYPE 2 DIABETES MELLITUS
     Route: 065
  7. GLIMEPIRIDE. [Concomitant]
     Active Substance: GLIMEPIRIDE
  8. NEXIUM [Suspect]
     Active Substance: ESOMEPRAZOLE MAGNESIUM
     Indication: DYSPEPSIA
     Route: 048
  9. ATENOLOL. [Suspect]
     Active Substance: ATENOLOL
     Indication: HYPERTENSION
     Route: 048
  10. BYDUREON [Suspect]
     Active Substance: EXENATIDE
     Indication: TYPE 2 DIABETES MELLITUS
     Route: 058
     Dates: start: 201608, end: 201608
  11. HYDROXYZINE [Concomitant]
     Active Substance: HYDROXYZINE\HYDROXYZINE HYDROCHLORIDE
     Indication: PRURITUS
     Route: 048
  12. FUROSEMIDE. [Concomitant]
     Active Substance: FUROSEMIDE
     Indication: DIURETIC THERAPY
     Route: 048

REACTIONS (9)
  - Fibromyalgia [Unknown]
  - Type 2 diabetes mellitus [Unknown]
  - Dyspepsia [Unknown]
  - Blood glucose increased [Unknown]
  - Blood glucose decreased [Unknown]
  - Pruritus [Unknown]
  - Body height decreased [Unknown]
  - Intentional product misuse [Unknown]
  - Arthritis [Unknown]
